FAERS Safety Report 9467266 (Version 2)
Quarter: 2014Q2

REPORT INFORMATION
  Report Type: Spontaneous
  Country: US (occurrence: US)
  Receive Date: 20130821
  Receipt Date: 20140616
  Transmission Date: 20141212
  Serious: No
  Sender: FDA-Public Use
  Company Number: US-BIOGENIDEC-2013BI076641

PATIENT
  Age: 63 Year
  Sex: Female

DRUGS (2)
  1. AVONEX [Suspect]
     Indication: MULTIPLE SCLEROSIS
     Route: 030
     Dates: start: 20040825, end: 201305
  2. AVONEX [Suspect]
     Indication: MULTIPLE SCLEROSIS
     Route: 030
     Dates: start: 20130531

REACTIONS (2)
  - Injection site rash [Recovered/Resolved]
  - Injection site erythema [Not Recovered/Not Resolved]
